FAERS Safety Report 22695243 (Version 4)
Quarter: 2024Q3

REPORT INFORMATION
  Report Type: Spontaneous
  Country: PL (occurrence: PL)
  Receive Date: 20230712
  Receipt Date: 20240809
  Transmission Date: 20241016
  Serious: Yes (Other)
  Sender: AUROBINDO
  Company Number: PL-EMA-DD-20220913-116003-122245

PATIENT
  Age: 4 Year
  Weight: 18 kg

DRUGS (10)
  1. ACYCLOVIR [Interacting]
     Active Substance: ACYCLOVIR
     Indication: Acute myeloid leukaemia
     Dosage: UNK
     Route: 065
  2. CYCLOSPORINE [Interacting]
     Active Substance: CYCLOSPORINE
     Indication: Acute myeloid leukaemia
     Dosage: UNK
     Route: 065
  3. CEFEPIME [Interacting]
     Active Substance: CEFEPIME HYDROCHLORIDE
     Indication: Acute myeloid leukaemia
     Dosage: UNK
     Route: 065
  4. CIPROFLOXACIN [Interacting]
     Active Substance: CIPROFLOXACIN
     Indication: Acute myeloid leukaemia
     Dosage: UNK
     Route: 065
  5. COTRIMOXAZOLE [Interacting]
     Active Substance: SULFAMETHOXAZOLE\TRIMETHOPRIM
     Indication: Acute myeloid leukaemia
     Dosage: UNK
     Route: 065
  6. POSACONAZOLE [Interacting]
     Active Substance: POSACONAZOLE
     Indication: Antifungal prophylaxis
     Dosage: UNK
     Route: 048
  7. POSACONAZOLE [Interacting]
     Active Substance: POSACONAZOLE
     Indication: Prophylaxis against transplant rejection
  8. TEICOPLANIN [Interacting]
     Active Substance: TEICOPLANIN
     Indication: Acute myeloid leukaemia
     Dosage: UNK
     Route: 065
  9. URSODIOL [Interacting]
     Active Substance: URSODIOL
     Indication: Acute myeloid leukaemia
     Dosage: UNK
     Route: 065
  10. SULFAMETHOXAZOLE\TRIMETHOPRIM [Interacting]
     Active Substance: SULFAMETHOXAZOLE\TRIMETHOPRIM
     Indication: Acute myeloid leukaemia

REACTIONS (5)
  - Drug level decreased [Unknown]
  - Drug level increased [Unknown]
  - Drug interaction [Unknown]
  - Product use in unapproved indication [Unknown]
  - Product use issue [Unknown]
